FAERS Safety Report 5076936-8 (Version None)
Quarter: 2006Q3

REPORT INFORMATION
  Report Type: 
  Country: None (occurrence: None)
  Receive Date: 20060810
  Receipt Date: 20060803
  Transmission Date: 20061208
  Serious: Yes (Death)
  Sender: FDA-Public Use
  Company Number: FR-SOLVAY-00206002538

PATIENT
  Age: 58 Year
  Sex: Male
  Weight: 88 kg

DRUGS (10)
  1. ASPEGIC 1000 [Concomitant]
     Indication: ILL-DEFINED DISORDER
     Dosage: DAILY DOSE:  UNKNOWN
     Route: 065
  2. COVERSYL [Suspect]
     Indication: ILL-DEFINED DISORDER
     Dosage: DAILY DOSE: 2 MILLIGRAM(S)
     Route: 048
     Dates: end: 20060629
  3. DAFALGAN [Concomitant]
     Indication: ILL-DEFINED DISORDER
     Dosage: DAILY DOSE:  UNKNOWN
     Route: 065
  4. ESCITALOPRAM [Suspect]
     Indication: ILL-DEFINED DISORDER
     Dosage: DAILY DOSE: 10 MILLIGRAM(S)
     Route: 048
     Dates: start: 20060407, end: 20060629
  5. DIAMICRON [Concomitant]
     Indication: ILL-DEFINED DISORDER
     Dosage: DAILY DOSE:  UNKNOWN
     Route: 065
  6. CARDENSIEL [Suspect]
     Indication: ILL-DEFINED DISORDER
     Dosage: DAILY DOSE: 1 DOSAGE FORM
     Route: 048
     Dates: end: 20060629
  7. GLUCOPHAGE [Suspect]
     Indication: ILL-DEFINED DISORDER
     Dosage: DAILY DOSE: 2550 MILLIGRAM(S)
     Route: 048
     Dates: end: 20060629
  8. GLUCOR [Concomitant]
     Indication: ILL-DEFINED DISORDER
     Dosage: DAILY DOSE:  UNKNOWN
     Route: 065
  9. LASILIX [Suspect]
     Indication: ILL-DEFINED DISORDER
     Dosage: DAILY DOSE: 1 DOSAGE FORM
     Route: 048
     Dates: end: 20060629
  10. VASTEN [Suspect]
     Indication: ILL-DEFINED DISORDER
     Dosage: DAILY DOSE: 1 DOSAGE FORM
     Route: 048
     Dates: end: 20060629

REACTIONS (4)
  - CARDIO-RESPIRATORY ARREST [None]
  - COMA [None]
  - CORONARY ARTERY DISEASE [None]
  - VENTRICULAR FIBRILLATION [None]
